FAERS Safety Report 23229418 (Version 7)
Quarter: 2024Q1

REPORT INFORMATION
  Report Type: Report from Study
  Country: US (occurrence: US)
  Receive Date: 20231127
  Receipt Date: 20240201
  Transmission Date: 20240410
  Serious: Yes (Hospitalization)
  Sender: FDA-Public Use
  Company Number: US-JNJFOC-20231160510

PATIENT
  Age: 51 Year
  Sex: Female
  Weight: 65.9 kg

DRUGS (4)
  1. EPOPROSTENOL SODIUM [Suspect]
     Active Substance: EPOPROSTENOL SODIUM
     Indication: Pulmonary hypertension
     Route: 042
  2. EPOPROSTENOL SODIUM [Suspect]
     Active Substance: EPOPROSTENOL SODIUM
     Indication: Pulmonary arterial hypertension
  3. AMBRISENTAN [Concomitant]
     Active Substance: AMBRISENTAN
  4. REMODULIN [Concomitant]
     Active Substance: TREPROSTINIL

REACTIONS (7)
  - Device occlusion [Unknown]
  - Chest pain [Unknown]
  - Illness [Unknown]
  - Dyspnoea [Unknown]
  - Therapy change [Unknown]
  - Bone pain [Unknown]
  - Underdose [Unknown]

NARRATIVE: CASE EVENT DATE: 20231001
